FAERS Safety Report 6694143-X (Version None)
Quarter: 2010Q2

REPORT INFORMATION
  Report Type: 
  Country: None (occurrence: None)
  Receive Date: 20100423
  Receipt Date: 20090817
  Transmission Date: 20101027
  Serious: No
  Sender: FDA-Public Use
  Company Number: A0803323A

PATIENT
  Age: 6 Year
  Sex: Female

DRUGS (1)
  1. FLONASE [Suspect]
     Indication: MULTIPLE ALLERGIES
     Route: 065

REACTIONS (1)
  - VARICELLA [None]
